FAERS Safety Report 21258769 (Version 3)
Quarter: 2022Q3

REPORT INFORMATION
  Report Type: Report from Study
  Country: CN (occurrence: CN)
  Receive Date: 20220826
  Receipt Date: 20220929
  Transmission Date: 20221026
  Serious: Yes (Hospitalization)
  Sender: FDA-Public Use
  Company Number: CN-PFIZER INC-PV202200048458

PATIENT
  Age: 59 Year
  Sex: Female

DRUGS (36)
  1. PACLITAXEL [Suspect]
     Active Substance: PACLITAXEL
     Indication: Triple negative breast cancer
     Dosage: 120.8 MG, WEEKLY, INFUSION
     Route: 042
     Dates: start: 20220525, end: 20220526
  2. PACLITAXEL [Suspect]
     Active Substance: PACLITAXEL
     Dosage: 119.2 MG, WEEKLY, INFUSION
     Route: 042
     Dates: start: 20220601, end: 20220601
  3. PACLITAXEL [Suspect]
     Active Substance: PACLITAXEL
     Dosage: 118.4 MG, WEEKLY, INFUSION
     Route: 042
     Dates: start: 20220609, end: 20220609
  4. PACLITAXEL [Suspect]
     Active Substance: PACLITAXEL
     Dosage: 119.2 MG, WEEKLY, INFUSION
     Route: 042
     Dates: start: 20220623, end: 20220623
  5. PACLITAXEL [Suspect]
     Active Substance: PACLITAXEL
     Dosage: 117.6 MG, WEEKLY, INFUSION
     Route: 042
     Dates: start: 20220630, end: 20220630
  6. PACLITAXEL [Suspect]
     Active Substance: PACLITAXEL
     Dosage: 117.6 MG, WEEKLY, INFUSION
     Route: 042
     Dates: start: 20220722, end: 20220722
  7. INVESTIGATIONAL PRODUCT [Suspect]
     Active Substance: INVESTIGATIONAL PRODUCT
     Indication: Triple negative breast cancer
     Dosage: UNK, 2X/DAY
     Route: 048
     Dates: start: 20220526, end: 20220529
  8. INVESTIGATIONAL PRODUCT [Suspect]
     Active Substance: INVESTIGATIONAL PRODUCT
     Dosage: UNK, 2X/DAY
     Route: 048
     Dates: start: 20220602, end: 20220605
  9. INVESTIGATIONAL PRODUCT [Suspect]
     Active Substance: INVESTIGATIONAL PRODUCT
     Dosage: UNK, 2X/DAY
     Route: 048
     Dates: start: 20220610, end: 20220610
  10. INVESTIGATIONAL PRODUCT [Suspect]
     Active Substance: INVESTIGATIONAL PRODUCT
     Dosage: UNK, 2X/DAY
     Route: 048
     Dates: start: 20220611, end: 20220611
  11. INVESTIGATIONAL PRODUCT [Suspect]
     Active Substance: INVESTIGATIONAL PRODUCT
     Dosage: UNK, 2X/DAY
     Route: 048
     Dates: start: 20220612, end: 20220613
  12. INVESTIGATIONAL PRODUCT [Suspect]
     Active Substance: INVESTIGATIONAL PRODUCT
     Dosage: UNK, 2X/DAY
     Route: 048
     Dates: start: 20220624, end: 20220627
  13. INVESTIGATIONAL PRODUCT [Suspect]
     Active Substance: INVESTIGATIONAL PRODUCT
     Dosage: UNK, 2X/DAY
     Route: 048
     Dates: start: 20220701, end: 20220701
  14. INVESTIGATIONAL PRODUCT [Suspect]
     Active Substance: INVESTIGATIONAL PRODUCT
     Dosage: UNK, 2X/DAY
     Route: 048
     Dates: start: 20220702, end: 20220704
  15. INVESTIGATIONAL PRODUCT [Suspect]
     Active Substance: INVESTIGATIONAL PRODUCT
     Dosage: UNK, 2X/DAY
     Route: 048
     Dates: start: 20220709, end: 20220712
  16. INVESTIGATIONAL PRODUCT [Suspect]
     Active Substance: INVESTIGATIONAL PRODUCT
     Dosage: UNK, 2X/DAY
     Route: 048
     Dates: start: 20220723, end: 20220726
  17. BENIDIPINE HYDROCHLORIDE [Concomitant]
     Active Substance: BENIDIPINE HYDROCHLORIDE
     Indication: Hypertension
     Dosage: 8 MG, DAILY
     Route: 048
     Dates: start: 20220517
  18. PROMETHAZINE HYDROCHLORIDE [Concomitant]
     Active Substance: PROMETHAZINE HYDROCHLORIDE
     Indication: Chemotherapy
     Dosage: 25 MG, ONCE
     Route: 030
     Dates: start: 20220722, end: 20220722
  19. DEXAMETHASONE SODIUM SUCCINATE [Concomitant]
     Active Substance: DEXAMETHASONE SODIUM SUCCINATE
     Indication: Chemotherapy side effect prophylaxis
     Dosage: 5 MG, ONCE
     Route: 042
     Dates: start: 20220630, end: 20220630
  20. DEXAMETHASONE SODIUM SUCCINATE [Concomitant]
     Active Substance: DEXAMETHASONE SODIUM SUCCINATE
     Indication: Antiallergic therapy
     Dosage: 5 MG, ONCE
     Route: 042
     Dates: start: 20220722, end: 20220722
  21. DEXAMETHASONE SODIUM SUCCINATE [Concomitant]
     Active Substance: DEXAMETHASONE SODIUM SUCCINATE
     Indication: Adjuvant therapy
  22. PANTOPRAZOLE SODIUM [Concomitant]
     Active Substance: PANTOPRAZOLE SODIUM
     Indication: Chemotherapy side effect prophylaxis
     Dosage: 40 MG, ONCE
     Route: 042
     Dates: start: 20220707, end: 20220707
  23. PANTOPRAZOLE SODIUM [Concomitant]
     Active Substance: PANTOPRAZOLE SODIUM
     Indication: Stoma care
     Dosage: 40 MG, ONCE
     Route: 042
     Dates: start: 20220722, end: 20220722
  24. PALOSET [Concomitant]
     Indication: Chemotherapy
     Dosage: 25 MG, ONCE
     Route: 042
     Dates: start: 20220722, end: 20220722
  25. IPRATROPIUM BROMIDE [Concomitant]
     Active Substance: IPRATROPIUM BROMIDE
     Indication: Treatment delayed
     Dosage: 0.5 MG, ONCE
     Route: 055
     Dates: start: 20220629, end: 20220629
  26. IPRATROPIUM BROMIDE [Concomitant]
     Active Substance: IPRATROPIUM BROMIDE
     Indication: Productive cough
     Dosage: 0.5 MG, ONCE
     Route: 055
     Dates: start: 20220722, end: 20220722
  27. IPRATROPIUM BROMIDE [Concomitant]
     Active Substance: IPRATROPIUM BROMIDE
     Indication: Prophylaxis
  28. ASPIRA [Concomitant]
     Indication: Treatment delayed
     Dosage: 1 MG, ONCE
     Route: 055
     Dates: start: 20220629, end: 20220629
  29. ASPIRA [Concomitant]
     Indication: Productive cough
     Dosage: 1 MG, ONCE
     Route: 055
     Dates: start: 20220722, end: 20220722
  30. ASPIRA [Concomitant]
     Indication: Prophylaxis
  31. PARECOXIB SODIUM [Concomitant]
     Active Substance: PARECOXIB SODIUM
     Indication: Back pain
     Dosage: 40 ML, ONCE
     Route: 042
     Dates: start: 20220707, end: 20220707
  32. POTASSIUM SODIUM TARTRATE [Concomitant]
     Active Substance: POTASSIUM SODIUM TARTRATE
     Indication: Malnutrition
     Dosage: 500 ML, ONCE
     Route: 042
     Dates: start: 20220707, end: 20220707
  33. BENZENE-1,3,5-TRIOL [Concomitant]
     Indication: Back pain
     Dosage: 40 MG, ONCE
     Route: 042
     Dates: start: 20220707, end: 20220707
  34. AMOXICILLIN\CLAVULANATE POTASSIUM [Concomitant]
     Active Substance: AMOXICILLIN\CLAVULANATE POTASSIUM
     Indication: Nephrolithiasis
     Dosage: 1.2 G, ONCE
     Route: 042
     Dates: start: 20220707, end: 20220707
  35. THYMUS [THYMUS SPP.] [Concomitant]
     Indication: Immunisation
     Dosage: 1.6 MG, ONCE
     Route: 023
     Dates: start: 20220707, end: 20220707
  36. AGARIC ACID [Concomitant]
     Indication: White blood cell count decreased
     Dosage: 2 G, TID
     Route: 048
     Dates: start: 20220624, end: 20220629

REACTIONS (1)
  - Hepatic function abnormal [Recovered/Resolved]

NARRATIVE: CASE EVENT DATE: 20220728
